FAERS Safety Report 8907271 (Version 1)
Quarter: 2012Q4

REPORT INFORMATION
  Report Type: Report from Study
  Country: US (occurrence: US)
  Receive Date: 20121114
  Receipt Date: 20121114
  Transmission Date: 20130627
  Serious: Yes (Hospitalization)
  Sender: FDA-Public Use
  Company Number: US-ACTELION-A-US2012-74085

PATIENT
  Age: 37 Year
  Sex: Female

DRUGS (2)
  1. VELETRI [Suspect]
     Indication: PULMONARY ARTERIAL HYPERTENSION
     Dosage: 42 ng/kg, per min
     Route: 042
     Dates: start: 20111123
  2. ASPIRIN [Concomitant]

REACTIONS (1)
  - Anxiety [Recovered/Resolved with Sequelae]
